FAERS Safety Report 5983915-2 (Version None)
Quarter: 2008Q4

REPORT INFORMATION
  Report Type: 
  Country: None (occurrence: None)
  Receive Date: 20081208
  Receipt Date: 20081128
  Transmission Date: 20090506
  Serious: No
  Sender: FDA-Public Use
  Company Number: AU-ELI_LILLY_AND_COMPANY-AU200809003010

PATIENT
  Sex: Male
  Weight: 65 kg

DRUGS (3)
  1. STRATTERA [Suspect]
     Indication: ATTENTION DEFICIT/HYPERACTIVITY DISORDER
     Dosage: 40 MG, UNKNOWN
     Route: 065
     Dates: start: 20080729, end: 20080101
  2. STRATTERA [Suspect]
     Dosage: 25 MG, UNKNOWN
     Route: 065
     Dates: start: 20080101, end: 20080101
  3. STRATTERA [Suspect]
     Dosage: 18 MG (0.3 MG/KG)
     Route: 065
     Dates: start: 20080101, end: 20080101

REACTIONS (1)
  - URINARY RETENTION [None]
